FAERS Safety Report 9731084 (Version 1)
Quarter: 2013Q4

REPORT INFORMATION
  Report Type: Spontaneous
  Country: US (occurrence: US)
  Receive Date: 20131203
  Receipt Date: 20131203
  Transmission Date: 20140711
  Serious: Yes (Hospitalization, Other)
  Sender: FDA-Public Use
  Company Number: US-SA-2013SA125087

PATIENT
  Sex: Female

DRUGS (2)
  1. LANTUS [Suspect]
     Route: 065
  2. INSULIN [Suspect]
     Route: 065

REACTIONS (3)
  - Mobility decreased [Unknown]
  - Skin discolouration [Unknown]
  - Hyperglycaemia [Unknown]
